FAERS Safety Report 8128578-5 (Version None)
Quarter: 2012Q1

REPORT INFORMATION
  Report Type: 
  Country: None (occurrence: None)
  Receive Date: 20120210
  Receipt Date: 20111208
  Transmission Date: 20120608
  Serious: No
  Sender: FDA-Public Use
  Company Number: US-BRISTOL-MYERS SQUIBB COMPANY-16279507

PATIENT
  Age: 40 Year
  Sex: Female

DRUGS (1)
  1. ORENCIA [Suspect]
     Dosage: LAST INF:MAY2011
     Dates: start: 20110201

REACTIONS (3)
  - WEIGHT DECREASED [None]
  - IMPAIRED GASTRIC EMPTYING [None]
  - DRUG INEFFECTIVE [None]
